FAERS Safety Report 7711611-X (Version None)
Quarter: 2011Q3

REPORT INFORMATION
  Report Type: 
  Country: None (occurrence: None)
  Receive Date: 20110826
  Receipt Date: 20110610
  Transmission Date: 20111222
  Serious: No
  Sender: FDA-Public Use
  Company Number: US-BRISTOL-MYERS SQUIBB COMPANY-15777121

PATIENT
  Age: 59 Year
  Sex: Male

DRUGS (5)
  1. LOVASTATIN [Concomitant]
     Route: 048
  2. ONGLYZA [Suspect]
     Indication: TYPE 2 DIABETES MELLITUS
     Dosage: DF:TABLET
     Route: 048
     Dates: start: 20110301, end: 20110501
  3. LISINOPRIL [Concomitant]
     Dosage: FORMULATION : 2.5MG,1DF=1TAB
     Route: 048
  4. METFORMIN HCL [Suspect]
     Indication: TYPE 2 DIABETES MELLITUS
     Route: 048
  5. GLUCOTROL XL [Suspect]
     Route: 048

REACTIONS (3)
  - HYPERSENSITIVITY [None]
  - BLOOD GLUCOSE DECREASED [None]
  - DIABETES MELLITUS INADEQUATE CONTROL [None]
